FAERS Safety Report 9709389 (Version 1)
Quarter: 2013Q4

REPORT INFORMATION
  Report Type: Spontaneous
  Country: GB (occurrence: GB)
  Receive Date: 20131126
  Receipt Date: 20131126
  Transmission Date: 20140711
  Serious: Yes (Life-Threatening, Other)
  Sender: FDA-Public Use
  Company Number: GB-ROXANE LABORATORIES, INC.-2013-RO-01856RO

PATIENT
  Age: 20 Year
  Sex: Male

DRUGS (2)
  1. LEVETIRACETAM [Suspect]
     Route: 048
  2. CARBAMAZEPINE [Suspect]
     Route: 048

REACTIONS (4)
  - Cardiac arrest [Recovered/Resolved]
  - Intentional overdose [Recovered/Resolved]
  - Grand mal convulsion [Unknown]
  - Bundle branch block right [Unknown]
